FAERS Safety Report 24605964 (Version 1)
Quarter: 2024Q4

REPORT INFORMATION
  Report Type: Spontaneous
  Country: US (occurrence: US)
  Receive Date: 20241111
  Receipt Date: 20241111
  Transmission Date: 20250115
  Serious: Yes (Hospitalization)
  Sender: NOVO NORDISK
  Company Number: US-NOVOPROD-1312652

PATIENT
  Age: 59 Year
  Sex: Male
  Weight: 103.8 kg

DRUGS (8)
  1. RYBELSUS [Suspect]
     Active Substance: SEMAGLUTIDE
     Indication: Type 2 diabetes mellitus
     Dosage: UNK
     Route: 048
     Dates: start: 20240228
  2. METFORMIN [Concomitant]
     Active Substance: METFORMIN HYDROCHLORIDE
     Indication: Type 2 diabetes mellitus
     Dosage: UNK
     Dates: start: 2013
  3. BUSPIRONE [Concomitant]
     Active Substance: BUSPIRONE HYDROCHLORIDE
     Indication: Generalised anxiety disorder
     Dosage: UNK
     Dates: start: 2013
  4. DIAZEPAM [Concomitant]
     Active Substance: DIAZEPAM
     Indication: Generalised anxiety disorder
     Dosage: UNK
     Dates: start: 2013
  5. INSULIN LISPRO [Concomitant]
     Active Substance: INSULIN LISPRO
     Indication: Type 2 diabetes mellitus
     Dosage: UNK
     Dates: start: 20240917, end: 20240920
  6. FAMOTIDINE [Concomitant]
     Active Substance: FAMOTIDINE
     Indication: Gastrooesophageal reflux disease
     Dosage: UNK
     Dates: start: 2019
  7. LISINOPRIL [Concomitant]
     Active Substance: LISINOPRIL
     Indication: Prophylaxis
     Dosage: UNK
     Dates: start: 2016
  8. TRIAMCINOLONE ACETONIDE [Concomitant]
     Active Substance: TRIAMCINOLONE ACETONIDE
     Indication: Dermatitis atopic
     Dosage: UNK
     Dates: start: 20240207

REACTIONS (2)
  - Pneumonia aspiration [Recovered/Resolved]
  - Vomiting [Unknown]

NARRATIVE: CASE EVENT DATE: 20240917
